FAERS Safety Report 8824460 (Version 1)
Quarter: 2012Q4

REPORT INFORMATION
  Report Type: 
  Country: US (occurrence: US)
  Receive Date: 20121004
  Receipt Date: 20121004
  Transmission Date: 20130627
  Serious: No
  Sender: FDA-Public Use
  Company Number: US-VIIV HEALTHCARE LIMITED-A0941721A

PATIENT
  Sex: Male

DRUGS (16)
  1. SELZENTRY [Suspect]
     Indication: HIV INFECTION
     Dosage: 150MG Twice per day
     Route: 048
     Dates: start: 201008
  2. ASPIRIN [Concomitant]
  3. BACLOFEN [Concomitant]
  4. CAVERJECT [Concomitant]
  5. CRESTOR [Concomitant]
  6. DICLOFENAC [Concomitant]
  7. GARDASIL [Concomitant]
  8. HYDROCODONE [Concomitant]
  9. INTELENCE [Concomitant]
  10. LORAZEPAM [Concomitant]
  11. NORVASC [Concomitant]
  12. NORVIR [Concomitant]
  13. EVISTA [Concomitant]
  14. QUINAPRIL [Concomitant]
  15. TESTOSTERONE [Concomitant]
  16. TRUVADA [Concomitant]

REACTIONS (1)
  - Tardive dyskinesia [Not Recovered/Not Resolved]
